FAERS Safety Report 10210982 (Version 1)
Quarter: 2014Q2

REPORT INFORMATION
  Report Type: Spontaneous
  Country: JP (occurrence: JP)
  Receive Date: 20140602
  Receipt Date: 20140602
  Transmission Date: 20141212
  Serious: Yes (Hospitalization)
  Sender: FDA-Public Use
  Company Number: JP-B.I. PHARMACEUTICALS,INC./RIDGEFIELD-2014-BI-24343NB

PATIENT
  Age: 55 Year
  Sex: Male

DRUGS (3)
  1. MICAMLO COMBINATION [Suspect]
     Indication: PRODUCT USED FOR UNKNOWN INDICATION
     Route: 048
     Dates: start: 201404
  2. BAYASPIRIN [Concomitant]
     Route: 065
  3. SERMION [Concomitant]
     Route: 065

REACTIONS (3)
  - Cardiac operation [Unknown]
  - Hypoaesthesia oral [Unknown]
  - Tongue discolouration [Unknown]
